FAERS Safety Report 24466556 (Version 1)
Quarter: 2024Q4

REPORT INFORMATION
  Report Type: Spontaneous
  Country: FR (occurrence: FR)
  Receive Date: 20241018
  Receipt Date: 20241018
  Transmission Date: 20250115
  Serious: Yes (Other)
  Sender: BAYER HEALTHCARE PHARMACEUTICALS INC.
  Company Number: None

PATIENT
  Age: 58 Year
  Sex: Female
  Weight: 112 kg

DRUGS (2)
  1. PRAZIQUANTEL [Suspect]
     Active Substance: PRAZIQUANTEL
     Dosage: 1 DF, QD
     Route: 048
     Dates: start: 202302, end: 20230508
  2. ALBENDAZOLE [Suspect]
     Active Substance: ALBENDAZOLE
     Indication: Prophylaxis
     Dosage: 1 DF, QD
     Route: 048
     Dates: start: 202302, end: 20230508

REACTIONS (1)
  - Hepatic cytolysis [Recovered/Resolved]

NARRATIVE: CASE EVENT DATE: 20230323
